FAERS Safety Report 23063360 (Version 1)
Quarter: 2023Q4

REPORT INFORMATION
  Report Type: Spontaneous
  Country: US (occurrence: None)
  Receive Date: 20231013
  Receipt Date: 20231013
  Transmission Date: 20240109
  Serious: Yes (Hospitalization)
  Sender: FDA-Public Use
  Company Number: 2023A228111

PATIENT
  Age: 68 Year
  Sex: Female

DRUGS (1)
  1. DURVALUMAB [Suspect]
     Active Substance: DURVALUMAB
     Indication: Lung adenocarcinoma
     Route: 042

REACTIONS (2)
  - Diaphragm muscle weakness [Not Recovered/Not Resolved]
  - Orthopnoea [Not Recovered/Not Resolved]
